FAERS Safety Report 6780746-0 (Version None)
Quarter: 2010Q2

REPORT INFORMATION
  Report Type: 
  Country: None (occurrence: None)
  Receive Date: 20100621
  Receipt Date: 20100609
  Transmission Date: 20101027
  Serious: Yes (Hospitalization)
  Sender: FDA-Public Use
  Company Number: JP-ELI_LILLY_AND_COMPANY-JP201006002657

PATIENT
  Age: 27 Year
  Sex: Male
  Weight: 63 kg

DRUGS (6)
  1. PEMETREXED [Suspect]
     Indication: LUNG ADENOCARCINOMA RECURRENT
     Dosage: 500 MG/M2, OTHER
     Route: 042
     Dates: start: 20091124, end: 20100309
  2. CARBOPLATIN [Concomitant]
     Indication: LUNG ADENOCARCINOMA RECURRENT
     Dosage: 698 MG, OTHER
     Route: 042
     Dates: start: 20091124, end: 20091215
  3. CISPLATIN [Concomitant]
     Indication: LUNG ADENOCARCINOMA RECURRENT
     Dosage: 80 MG/M2, UNK
     Route: 042
     Dates: start: 20100210, end: 20100210
  4. PANVITAN [Concomitant]
     Dosage: 1 G, DAILY (1/D)
     Route: 048
     Dates: start: 20091113, end: 20100407
  5. HYDROXOCOBALAMIN ACETATE [Concomitant]
     Dosage: 1 MG, UNK
     Route: 030
     Dates: start: 20091113, end: 20100126
  6. PRIMPERAN /00041901/ [Concomitant]
     Route: 048
     Dates: start: 20091215, end: 20091217

REACTIONS (2)
  - ANAPHYLACTIC REACTION [None]
  - ANAPHYLACTOID SHOCK [None]
